FAERS Safety Report 19268500 (Version 2)
Quarter: 2021Q2

REPORT INFORMATION
  Report Type: Report from Study
  Country: CA (occurrence: CA)
  Receive Date: 20210517
  Receipt Date: 20210531
  Transmission Date: 20210717
  Serious: Yes (Other)
  Sender: FDA-Public Use
  Company Number: NVSC2021CA104644

PATIENT
  Age: 64 Year
  Sex: Female

DRUGS (3)
  1. SANDOSTATIN LAR DEPOT [Suspect]
     Active Substance: OCTREOTIDE ACETATE
  2. SANDOSTATIN LAR DEPOT [Suspect]
     Active Substance: OCTREOTIDE ACETATE
     Indication: GASTROINTESTINAL CARCINOMA
     Dosage: 40 MG, Q2W
     Route: 030
     Dates: start: 20070503, end: 20100727
  3. SANDOSTATIN LAR DEPOT [Suspect]
     Active Substance: OCTREOTIDE ACETATE
     Dosage: 40 MG, Q3W
     Route: 030
     Dates: start: 20190301

REACTIONS (7)
  - Haemarthrosis [Unknown]
  - Joint swelling [Unknown]
  - Deafness bilateral [Unknown]
  - Joint effusion [Unknown]
  - Gait disturbance [Unknown]
  - Arthralgia [Unknown]
  - Cyst [Unknown]

NARRATIVE: CASE EVENT DATE: 202104
